FAERS Safety Report 4908998-X (Version None)
Quarter: 2006Q1

REPORT INFORMATION
  Report Type: 
  Country: None (occurrence: None)
  Receive Date: 20060209
  Receipt Date: 20060124
  Transmission Date: 20060701
  Serious: Yes (Hospitalization, Other)
  Sender: FDA-Public Use
  Company Number: US200601004303

PATIENT
  Age: 86 Year
  Sex: Female

DRUGS (2)
  1. FORTEO [Suspect]
     Indication: OSTEOPOROSIS
     Dates: start: 20040401, end: 20060118
  2. FORTEO [Concomitant]

REACTIONS (2)
  - CHEST PAIN [None]
  - TRIPLE VESSEL BYPASS GRAFT [None]
